FAERS Safety Report 23937475 (Version 1)
Quarter: 2024Q2

REPORT INFORMATION
  Report Type: Spontaneous
  Country: AE (occurrence: AE)
  Receive Date: 20240604
  Receipt Date: 20240604
  Transmission Date: 20240716
  Serious: Yes (Hospitalization)
  Sender: FDA-Public Use
  Company Number: AE-SUN PHARMACEUTICAL INDUSTRIES LTD-2024RR-449977

PATIENT
  Age: 25 Year
  Sex: Female

DRUGS (1)
  1. ASPIRIN [Suspect]
     Active Substance: ASPIRIN
     Indication: Product used for unknown indication
     Dosage: 35 GRAM, (70 TABLETS OF 0.5G)
     Route: 065

REACTIONS (2)
  - Overdose [Recovered/Resolved]
  - Tinnitus [Recovered/Resolved]
